FAERS Safety Report 4430632-6 (Version None)
Quarter: 2004Q3

REPORT INFORMATION
  Report Type: 
  Country: None (occurrence: None)
  Receive Date: 20040818
  Receipt Date: 20040803
  Transmission Date: 20050211
  Serious: Yes (Hospitalization)
  Sender: FDA-Public Use
  Company Number: 04P-062-0269005-00

PATIENT
  Age: 48 Year
  Sex: Female
  Weight: 48 kg

DRUGS (5)
  1. AKINETON [Suspect]
     Indication: SUICIDE ATTEMPT
     Dosage: ONCE, PER ORAL
     Route: 048
     Dates: start: 20040803, end: 20040803
  2. LORAZEPAM [Suspect]
     Indication: SUICIDE ATTEMPT
     Dosage: 12-16 TABLETS, ONCE, PER ORAL
     Route: 048
     Dates: start: 20040803, end: 20040803
  3. RISPERIDONE [Suspect]
     Indication: SUICIDE ATTEMPT
     Dosage: ONCE, PER ORAL
     Route: 048
     Dates: start: 20040803, end: 20040803
  4. FLUNITRAZEPAM [Suspect]
     Indication: SUICIDE ATTEMPT
     Dosage: ONCE, PER ORAL
     Route: 048
     Dates: start: 20040803, end: 20040803
  5. CLOPENTHIXOL HYDROCHLORIDE [Suspect]
     Indication: SUICIDE ATTEMPT
     Dosage: ONCE, PER ORAL
     Route: 048
     Dates: start: 20040803, end: 20040803

REACTIONS (2)
  - MULTIPLE DRUG OVERDOSE INTENTIONAL [None]
  - SUICIDE ATTEMPT [None]
